FAERS Safety Report 16988760 (Version 1)
Quarter: 2019Q4

REPORT INFORMATION
  Report Type: Spontaneous
  Country: US (occurrence: US)
  Receive Date: 20191104
  Receipt Date: 20191104
  Transmission Date: 20200122
  Serious: Yes (Other)
  Sender: FDA-Public Use
  Company Number: US-SUNOVION-2019SUN004735

PATIENT
  Age: 83 Year
  Sex: Female

DRUGS (1)
  1. LONHALA MAGNAIR [Suspect]
     Active Substance: GLYCOPYRROLATE
     Dosage: 25 ?G, BID (60/30)
     Route: 055

REACTIONS (4)
  - Back injury [Unknown]
  - Dysstasia [Unknown]
  - Back pain [Unknown]
  - Movement disorder [Unknown]
